APPROVED DRUG PRODUCT: NYSTATIN
Active Ingredient: NYSTATIN
Strength: 100,000 UNITS/ML
Dosage Form/Route: SUSPENSION;ORAL
Application: A062776 | Product #001
Applicant: COSETTE PHARMACEUTICALS INC
Approved: Dec 17, 1987 | RLD: No | RS: No | Type: DISCN